FAERS Safety Report 14890510 (Version 1)
Quarter: 2018Q2

REPORT INFORMATION
  Report Type: Spontaneous
  Country: DE (occurrence: DE)
  Receive Date: 20180514
  Receipt Date: 20180514
  Transmission Date: 20180711
  Serious: Yes (Other)
  Sender: FDA-Public Use
  Company Number: PHHY2018DE007960

PATIENT
  Sex: Female

DRUGS (1)
  1. NAPROXEN - 1 A PHARMA [Suspect]
     Active Substance: NAPROXEN
     Indication: MENSTRUAL DISORDER
     Dosage: UNK
     Route: 048
     Dates: start: 20170720

REACTIONS (5)
  - Diarrhoea haemorrhagic [Unknown]
  - Rash [Unknown]
  - Self esteem decreased [Not Recovered/Not Resolved]
  - Scar [Not Recovered/Not Resolved]
  - Psychiatric symptom [Not Recovered/Not Resolved]
